FAERS Safety Report 10638583 (Version 1)
Quarter: 2014Q4

REPORT INFORMATION
  Report Type: Spontaneous
  Country: US (occurrence: None)
  Receive Date: 20141121
  Receipt Date: 20141121
  Transmission Date: 20150529
  Serious: No
  Sender: FDA-Public Use
  Company Number: 163-10004-14083225

PATIENT
  Age: 81 Year
  Sex: Female
  Weight: 60.69 kg

DRUGS (14)
  1. CITRICAL CALCIUM +D3 (CALCIUM CITRATE W/COLECALCIFEROL) [Concomitant]
  2. OTEZLA [Suspect]
     Active Substance: APREMILAST
     Indication: PSORIATIC ARTHROPATHY
     Route: 048
     Dates: start: 20140801
  3. POTASSIUM CL (POTASSIUM CHLORIDE) [Concomitant]
  4. CRESTOR [Concomitant]
     Active Substance: ROSUVASTATIN CALCIUM
  5. MELOXICAM (MELOXICAM) [Suspect]
     Active Substance: MELOXICAM
  6. CENTRUM SILVER [Concomitant]
     Active Substance: VITAMINS
  7. ASPIRIN (ACETYLSALICYLIC ACID) [Concomitant]
     Active Substance: ASPIRIN
  8. METOPROLOL (METOPROLOL) [Concomitant]
     Active Substance: METOPROLOL
  9. CLONIDINE (CLONIDINE) [Concomitant]
     Active Substance: CLONIDINE
  10. TYLENOL ARTHRITIS (PARACETAMOL) [Concomitant]
  11. LOSARTAN POTASSIUM (LOSARTAN POTASSIUM) [Concomitant]
     Active Substance: LOSARTAN POTASSIUM
  12. SYNTHROID [Concomitant]
     Active Substance: LEVOTHYROXINE SODIUM
  13. AMLODIPINE [Concomitant]
     Active Substance: AMLODIPINE BESYLATE
  14. OMEPRAZOLE (OMEPRAZOLE) [Concomitant]
     Active Substance: OMEPRAZOLE

REACTIONS (3)
  - Language disorder [None]
  - Face oedema [None]
  - Pollakiuria [None]

NARRATIVE: CASE EVENT DATE: 20140810
